FAERS Safety Report 6577202-1 (Version None)
Quarter: 2010Q1

REPORT INFORMATION
  Report Type: 
  Country: None (occurrence: None)
  Receive Date: 20100210
  Receipt Date: 20100204
  Transmission Date: 20100710
  Serious: Yes (Life-Threatening, Disabling, Other)
  Sender: FDA-Public Use
  Company Number: PHEH2009US08824

PATIENT
  Sex: Male
  Weight: 141 kg

DRUGS (23)
  1. RECLAST [Suspect]
     Indication: OSTEOPOROSIS
     Dosage: 5 MG, ONCE/SINGLE, ONE/YEAR
     Route: 042
     Dates: start: 20080814, end: 20080814
  2. TESTIM [Concomitant]
     Indication: HYPOGONADISM
     Dosage: 5 GM DAILY
  3. SIMVASTATIN [Concomitant]
     Indication: BLOOD CHOLESTEROL INCREASED
     Dosage: 20 MG, QD
     Dates: start: 20080101
  4. ZETIA [Concomitant]
     Indication: BLOOD CHOLESTEROL INCREASED
     Dosage: 10 MG, QD
     Dates: start: 20070101
  5. LISINOPRIL [Concomitant]
     Dosage: 40 MG, QD
  6. METOPROLOL TARTRATE [Concomitant]
     Dosage: 25 MG, BID
  7. REQUIP [Concomitant]
     Indication: MUSCLE SPASTICITY
     Dosage: 2 MG, BID
     Dates: start: 20070101
  8. CYMBALTA [Concomitant]
     Indication: DEPRESSION
     Dosage: 20 MG, QD
     Dates: start: 20080401
  9. VITAMIN D [Concomitant]
     Dosage: 50000 UNITS
  10. OYSCO [Concomitant]
     Dosage: 500MG + D
  11. QUININE SULFATE [Concomitant]
  12. BENZONATATE [Concomitant]
     Indication: COUGH
  13. MECLIZINE [Concomitant]
     Indication: DIZZINESS
     Dosage: 25 MG, PRN
     Dates: start: 20070101
  14. KLONOPIN [Concomitant]
     Indication: FALL
  15. TORSEMIDE [Concomitant]
     Dosage: 20 MG, BID
  16. TESTOSTERONE [Concomitant]
  17. MULTIVIT [Concomitant]
     Dosage: UNK
  18. LOVAZA [Concomitant]
     Dosage: UNK
  19. ASTELIN [Concomitant]
     Dosage: 30 ML, BID
  20. FLONASE [Concomitant]
     Dosage: 50 ML, BID
  21. SYSTANE (PROPYLENE GLYCOL/MACROGOL) [Concomitant]
     Dosage: UNK
  22. CLONAZEPAM [Concomitant]
     Dosage: 0.5 MG, PRN
  23. COMBIVENT                               /GFR/ [Concomitant]
     Dosage: 2 PUFFS QID

REACTIONS (27)
  - ARTHRALGIA [None]
  - BONE PAIN [None]
  - CONDITION AGGRAVATED [None]
  - DIZZINESS [None]
  - ENDODONTIC PROCEDURE [None]
  - FATIGUE [None]
  - FEELING ABNORMAL [None]
  - GINGIVAL BLEEDING [None]
  - GINGIVAL ULCERATION [None]
  - HEADACHE [None]
  - INSOMNIA [None]
  - JAW DISORDER [None]
  - MALAISE [None]
  - MASTICATION DISORDER [None]
  - MYALGIA [None]
  - NEURALGIA [None]
  - ORAL INFECTION [None]
  - OSTEONECROSIS [None]
  - PAIN [None]
  - PAIN IN JAW [None]
  - PRURITUS [None]
  - RASH GENERALISED [None]
  - SENSITIVITY OF TEETH [None]
  - SWELLING [None]
  - SWOLLEN TONGUE [None]
  - TONSILLAR HYPERTROPHY [None]
  - TOOTH INFECTION [None]
